FAERS Safety Report 4339143-X (Version None)
Quarter: 2004Q2

REPORT INFORMATION
  Report Type: 
  Country: None (occurrence: None)
  Receive Date: 20040413
  Receipt Date: 20040413
  Transmission Date: 20050107
  Serious: Yes (Hospitalization)
  Sender: FDA-Public Use
  Company Number: None

PATIENT
  Sex: Male
  Weight: 74 kg

DRUGS (9)
  1. ZOMETA [Suspect]
     Indication: PROSTATE CANCER
     Dosage: 4 MG IV
     Route: 042
     Dates: start: 20031023
  2. LUPRON [Concomitant]
  3. RANITIDINE [Concomitant]
  4. NITRO PATCH [Concomitant]
  5. NITRO SUBLINGUAL [Concomitant]
  6. NORVASC [Concomitant]
  7. PLAVIX [Concomitant]
  8. ZETIA [Concomitant]
  9. METOPROLOL [Concomitant]

REACTIONS (4)
  - ARTHRALGIA [None]
  - CHEST PAIN [None]
  - CHEST WALL PAIN [None]
  - MYOPATHY [None]
